FAERS Safety Report 11130875 (Version 2)
Quarter: 2015Q3

REPORT INFORMATION
  Report Type: Spontaneous
  Country: US (occurrence: US)
  Receive Date: 20150522
  Receipt Date: 20150730
  Transmission Date: 20151125
  Serious: Yes (Other)
  Sender: FDA-Public Use
  Company Number: US-BAYER-2015-216993

PATIENT
  Age: 36 Year
  Sex: Female
  Weight: 77.98 kg

DRUGS (6)
  1. ADVIL [Concomitant]
     Active Substance: IBUPROFEN
     Dosage: 200 MG 1 TABLET AS NEEDED BID
  2. RELPAX [Concomitant]
     Active Substance: ELETRIPTAN HYDROBROMIDE
     Dosage: 40 MG TABLET 1 TABLET AS NEEDED BID
  3. HYDROCORTISONE VALERATE. [Concomitant]
     Active Substance: HYDROCORTISONE VALERATE
     Dosage: 1 APPLICATION ONCE A DAY
  4. PRILOSEC [Concomitant]
     Active Substance: OMEPRAZOLE MAGNESIUM
     Dosage: 40MG 1 DF, QD
  5. MIRENA [Suspect]
     Active Substance: LEVONORGESTREL
     Indication: CONTRACEPTION
     Dosage: 20 MCG/24HR, CONT
     Route: 015
     Dates: start: 20140530
  6. MOTRIN [Concomitant]
     Active Substance: IBUPROFEN
     Indication: PYREXIA
     Dosage: 1 DF, TID

REACTIONS (14)
  - Vaginal infection [None]
  - Device allergy [None]
  - Vulvovaginal pruritus [None]
  - Vulvovaginal rash [None]
  - Vaginal discharge [None]
  - Device dislocation [None]
  - Vulvovaginitis [None]
  - Vulvovaginal pain [None]
  - Back pain [None]
  - Diarrhoea [None]
  - Pyrexia [None]
  - Menstruation delayed [None]
  - Rash papular [None]
  - Urticaria [None]

NARRATIVE: CASE EVENT DATE: 2014
